FAERS Safety Report 12344953 (Version 2)
Quarter: 2016Q3

REPORT INFORMATION
  Report Type: Spontaneous
  Country: SK (occurrence: SK)
  Receive Date: 20160507
  Receipt Date: 20160720
  Transmission Date: 20161109
  Serious: Yes (Hospitalization)
  Sender: FDA-Public Use
  Company Number: SK-AMGEN-SVKSP2016054044

PATIENT
  Age: 35 Year
  Sex: Female

DRUGS (3)
  1. MIMPARA [Suspect]
     Active Substance: CINACALCET HYDROCHLORIDE
     Dosage: 30 MG, BID
     Route: 048
  2. MIMPARA [Suspect]
     Active Substance: CINACALCET HYDROCHLORIDE
     Dosage: 60 MG, 1-1/2-1
     Route: 048
  3. MIMPARA [Suspect]
     Active Substance: CINACALCET HYDROCHLORIDE
     Indication: PRODUCT USED FOR UNKNOWN INDICATION
     Dosage: UNK
     Route: 065
     Dates: start: 20141201

REACTIONS (5)
  - Blood pressure abnormal [Unknown]
  - Renal colic [Unknown]
  - Maternal exposure during pregnancy [Unknown]
  - Hypercalcaemia [Unknown]
  - Peripheral swelling [Unknown]

NARRATIVE: CASE EVENT DATE: 201502
